FAERS Safety Report 8943516 (Version 2)
Quarter: 2012Q4

REPORT INFORMATION
  Report Type: 
  Country: US (occurrence: US)
  Receive Date: 20121204
  Receipt Date: 20121228
  Transmission Date: 20130627
  Serious: No
  Sender: FDA-Public Use
  Company Number: US-PFIZER INC-2009228078

PATIENT
  Age: 76 Year
  Sex: Female

DRUGS (2)
  1. SUTENT [Suspect]
     Indication: NEUROENDOCRINE CARCINOMA
     Dosage: 25 mg, 1x/day
     Route: 048
     Dates: start: 20111118, end: 20120821
  2. SUTENT [Suspect]
     Dosage: 12.5 mg, 1x/day
     Route: 048
     Dates: end: 20121031

REACTIONS (5)
  - General physical health deterioration [Unknown]
  - Thrombocytopenia [Not Recovered/Not Resolved]
  - Oedema peripheral [Not Recovered/Not Resolved]
  - Asthenia [Not Recovered/Not Resolved]
  - Hypothyroidism [Not Recovered/Not Resolved]
